FAERS Safety Report 24846041 (Version 1)
Quarter: 2025Q1

REPORT INFORMATION
  Report Type: Spontaneous
  Country: US (occurrence: None)
  Receive Date: 20250115
  Receipt Date: 20250115
  Transmission Date: 20250408
  Serious: Yes (unspecified)
  Sender: FDA-CTU
  Company Number: None

PATIENT
  Age: 26 Year
  Sex: Male
  Weight: 49.7 kg

DRUGS (2)
  1. SOGROYA [Suspect]
     Active Substance: SOMAPACITAN-BECO
     Indication: Hypopituitarism
     Dosage: OTHER FREQUENCY : WEEKLY;?
     Route: 058
     Dates: start: 20240802, end: 20250110
  2. SOGROYA [Concomitant]
     Active Substance: SOMAPACITAN-BECO
     Dates: start: 20240802, end: 20250110

REACTIONS (3)
  - Personality change [None]
  - Aggression [None]
  - Intentional self-injury [None]

NARRATIVE: CASE EVENT DATE: 20250114
